FAERS Safety Report 7960934-8 (Version None)
Quarter: 2011Q4

REPORT INFORMATION
  Report Type: 
  Country: None (occurrence: None)
  Receive Date: 20111202
  Receipt Date: 20111123
  Transmission Date: 20120403
  Serious: Yes (Hospitalization, Other)
  Sender: FDA-Public Use
  Company Number: AUR-APL-2011-05921

PATIENT
  Weight: 4.06 kg

DRUGS (3)
  1. LAMOTRIGINE [Suspect]
     Indication: EPILEPSY
     Dosage: (350 MG,1 D),TRANSPLACENTAL
     Route: 064
  2. FOLIC ACID [Concomitant]
  3. POTASSIUM IODIDE [Concomitant]

REACTIONS (3)
  - SOMNOLENCE [None]
  - CONGENITAL CHOROID PLEXUS CYST [None]
  - MATERNAL DRUGS AFFECTING FOETUS [None]
